FAERS Safety Report 9479211 (Version 2)
Quarter: 2013Q3

REPORT INFORMATION
  Report Type: Spontaneous
  Country: US (occurrence: US)
  Receive Date: 20130827
  Receipt Date: 20130912
  Transmission Date: 20140515
  Serious: Yes (Hospitalization)
  Sender: FDA-Public Use
  Company Number: US-BRISTOL-MYERS SQUIBB COMPANY-19196575

PATIENT
  Age: 52 Year
  Sex: Male

DRUGS (6)
  1. BYDUREON 2MG SUSPENSION [Suspect]
     Indication: TYPE 2 DIABETES MELLITUS
     Route: 058
     Dates: start: 20130607, end: 20130712
  2. LIPITOR [Concomitant]
  3. LOVAZA [Concomitant]
  4. METFORMIN [Concomitant]
  5. GLYBURIDE [Concomitant]
  6. PIOGLITAZONE HCL [Concomitant]

REACTIONS (1)
  - Pancreatitis acute [Recovering/Resolving]
